FAERS Safety Report 24751297 (Version 6)
Quarter: 2025Q2

REPORT INFORMATION
  Report Type: Spontaneous
  Country: JP (occurrence: JP)
  Receive Date: 20241219
  Receipt Date: 20250403
  Transmission Date: 20250716
  Serious: Yes (Other)
  Sender: GALDERMA
  Company Number: JP-GALDERMA-JP2024018226

PATIENT

DRUGS (16)
  1. NEMOLIZUMAB [Suspect]
     Active Substance: NEMOLIZUMAB
     Indication: Neurodermatitis
     Route: 058
     Dates: start: 20240617, end: 20240617
  2. NEMOLIZUMAB [Suspect]
     Active Substance: NEMOLIZUMAB
     Route: 058
  3. NEMOLIZUMAB [Suspect]
     Active Substance: NEMOLIZUMAB
     Route: 058
  4. NEMOLIZUMAB [Suspect]
     Active Substance: NEMOLIZUMAB
     Route: 058
  5. NEMOLIZUMAB [Suspect]
     Active Substance: NEMOLIZUMAB
     Route: 058
  6. NEMOLIZUMAB [Suspect]
     Active Substance: NEMOLIZUMAB
     Route: 058
  7. NEMOLIZUMAB [Suspect]
     Active Substance: NEMOLIZUMAB
     Route: 058
     Dates: start: 20241211, end: 20241211
  8. AMLODIPINE [Concomitant]
     Active Substance: AMLODIPINE BESYLATE
     Indication: Hypertension
     Route: 048
  9. OMEGA-3-ACID ETHYL ESTER [Concomitant]
     Active Substance: OMEGA-3-ACID ETHYL ESTERS
     Indication: Product used for unknown indication
     Route: 048
  10. BETAMETHASONE DIPROPIONATE [Concomitant]
     Active Substance: BETAMETHASONE DIPROPIONATE
     Indication: Product used for unknown indication
     Route: 061
  11. CLOBETASOL [Concomitant]
     Active Substance: CLOBETASOL
     Indication: Product used for unknown indication
     Route: 061
  12. TELMISARTAN [Concomitant]
     Active Substance: TELMISARTAN
     Indication: Hypertension
     Route: 048
  13. DOXAZOSIN [Concomitant]
     Active Substance: DOXAZOSIN MESYLATE
     Indication: Hypertension
     Route: 048
  14. FAMOTIDINE [Concomitant]
     Active Substance: FAMOTIDINE
     Indication: Product used for unknown indication
     Route: 065
  15. ZOLPIDEM TARTRATE [Concomitant]
     Active Substance: ZOLPIDEM TARTRATE
     Indication: Product used for unknown indication
     Route: 048
  16. PREDNISOLONE [Concomitant]
     Active Substance: PREDNISOLONE
     Indication: Product used for unknown indication
     Route: 065

REACTIONS (2)
  - Loss of consciousness [Recovered/Resolved]
  - Intentional product use issue [Recovered/Resolved]

NARRATIVE: CASE EVENT DATE: 20240617
